FAERS Safety Report 12804317 (Version 7)
Quarter: 2016Q4

REPORT INFORMATION
  Report Type: Spontaneous
  Country: JP (occurrence: JP)
  Receive Date: 20161003
  Receipt Date: 20161129
  Transmission Date: 20170207
  Serious: Yes (Life-Threatening, Hospitalization)
  Sender: FDA-Public Use
  Company Number: PHJP2016JP027675

PATIENT
  Sex: Female
  Weight: 47 kg

DRUGS (3)
  1. CARBAMAZEPINE. [Suspect]
     Active Substance: CARBAMAZEPINE
     Indication: EPILEPSY
     Dosage: 300 MG, QD
     Route: 048
  2. ZONISAMIDE. [Suspect]
     Active Substance: ZONISAMIDE
     Indication: EPILEPSY
     Dosage: 100 MG, QD
     Route: 048
  3. FOLIC ACID. [Suspect]
     Active Substance: FOLIC ACID
     Indication: EPILEPSY
     Dosage: 5 MG, QD
     Route: 048

REACTIONS (10)
  - Maternal exposure during pregnancy [Unknown]
  - Tenderness [Unknown]
  - Dehydration [Unknown]
  - Protein S decreased [Unknown]
  - Pain in extremity [Unknown]
  - Swelling [Unknown]
  - Deep vein thrombosis [Recovering/Resolving]
  - Fibrin D dimer increased [Unknown]
  - Hyperemesis gravidarum [Unknown]
  - Weight decreased [Unknown]
